FAERS Safety Report 7691120-7 (Version None)
Quarter: 2011Q3

REPORT INFORMATION
  Report Type: 
  Country: None (occurrence: None)
  Receive Date: 20110818
  Receipt Date: 20110815
  Transmission Date: 20111222
  Serious: Yes (Other)
  Sender: FDA-Public Use
  Company Number: GB-PFIZER INC-2011187813

PATIENT
  Age: 35 Year
  Sex: Female

DRUGS (5)
  1. TRAMADOL [Concomitant]
     Indication: PAIN
     Dosage: 100 MG, 4X/DAY
     Route: 048
     Dates: start: 20110706
  2. TEICOPLANIN [Concomitant]
     Indication: CELLULITIS
     Dosage: 600 MG, 1X/DAY
     Route: 042
     Dates: start: 20110707, end: 20110711
  3. ENOXAPARIN [Concomitant]
     Indication: THROMBOSIS PROPHYLAXIS
     Dosage: 40 MG, 1X/DAY
     Route: 058
     Dates: start: 20110629
  4. CLINDAMYCIN PHOSPHATE [Suspect]
     Indication: SEPSIS
  5. CLINDAMYCIN PHOSPHATE [Suspect]
     Indication: CELLULITIS
     Dosage: 900 MG, 4X/DAY
     Route: 042
     Dates: start: 20110707, end: 20110709

REACTIONS (3)
  - SKIN WARM [None]
  - ERYTHEMA [None]
  - RASH GENERALISED [None]
